FAERS Safety Report 5875806-2 (Version None)
Quarter: 2008Q3

REPORT INFORMATION
  Report Type: 
  Country: None (occurrence: None)
  Receive Date: 20080908
  Receipt Date: 20080828
  Transmission Date: 20090109
  Serious: Yes (Hospitalization)
  Sender: FDA-Public Use
  Company Number: 2008BI0078725

PATIENT
  Age: 57 Year
  Sex: Male
  Weight: 56.6996 kg

DRUGS (3)
  1. AVONEX [Suspect]
     Indication: MULTIPLE SCLEROSIS
     Dosage: 30 UG QW IM; 30 UG IM; 30 UG QW IM
     Route: 030
     Dates: start: 20020821, end: 20030101
  2. AVONEX [Suspect]
     Indication: MULTIPLE SCLEROSIS
     Dosage: 30 UG QW IM; 30 UG IM; 30 UG QW IM
     Route: 030
     Dates: end: 20050401
  3. AVONEX [Suspect]
     Indication: MULTIPLE SCLEROSIS
     Dosage: 30 UG QW IM; 30 UG IM; 30 UG QW IM
     Route: 030
     Dates: start: 20050101

REACTIONS (3)
  - NASAL ODOUR [None]
  - RHINORRHOEA [None]
  - SQUAMOUS CELL CARCINOMA [None]
